FAERS Safety Report 12549499 (Version 4)
Quarter: 2016Q3

REPORT INFORMATION
  Report Type: Report from Study
  Country: PT (occurrence: PT)
  Receive Date: 20160712
  Receipt Date: 20160919
  Transmission Date: 20161109
  Serious: Yes (Life-Threatening, Hospitalization, Other)
  Sender: FDA-Public Use
  Company Number: PT-ABBVIE-16K-130-1671886-00

PATIENT
  Age: 61 Year
  Sex: Female
  Weight: 53 kg

DRUGS (9)
  1. HUMIRA [Suspect]
     Active Substance: ADALIMUMAB
     Dosage: WEEK FOUR, MAINTENANCE DOSE
     Route: 058
     Dates: start: 20160713
  2. TRASTUZUMAB [Suspect]
     Active Substance: TRASTUZUMAB
     Indication: BREAST CANCER
     Dosage: 4 ADMINISTRATIONS
     Route: 065
     Dates: end: 201405
  3. ADT [Concomitant]
     Active Substance: AMITRIPTYLINE HYDROCHLORIDE
     Indication: ANXIETY
     Route: 048
     Dates: start: 2015
  4. VENLAFAXINE [Concomitant]
     Active Substance: VENLAFAXINE HYDROCHLORIDE
     Indication: ANXIETY
     Route: 048
  5. VIGANTOL [Concomitant]
     Indication: ANXIETY
     Route: 048
     Dates: start: 2015
  6. HUMIRA [Suspect]
     Active Substance: ADALIMUMAB
     Dosage: WEEK TWO, LOADING DOSE 2
     Route: 058
     Dates: start: 20160629, end: 20160629
  7. HUMIRA [Suspect]
     Active Substance: ADALIMUMAB
     Indication: CROHN^S DISEASE
     Route: 058
     Dates: start: 2010, end: 201212
  8. VIGANTOL [Concomitant]
     Indication: ANXIETY
     Route: 048
     Dates: start: 2015
  9. HUMIRA [Suspect]
     Active Substance: ADALIMUMAB
     Indication: CROHN^S DISEASE
     Dosage: LOADING DOSE ONE(WEEK ZERO)
     Route: 058
     Dates: start: 20160615, end: 20160615

REACTIONS (8)
  - Frequent bowel movements [Recovered/Resolved]
  - Post procedural fistula [Not Recovered/Not Resolved]
  - Vomiting [Recovered/Resolved]
  - Wound complication [Recovered/Resolved]
  - Anxiety [Recovering/Resolving]
  - Breast cancer female [Recovered/Resolved]
  - Crohn^s disease [Recovered/Resolved]
  - Dizziness [Recovered/Resolved]

NARRATIVE: CASE EVENT DATE: 201212
